FAERS Safety Report 5471244-5 (Version None)
Quarter: 2007Q3

REPORT INFORMATION
  Report Type: 
  Country: None (occurrence: None)
  Receive Date: 20070928
  Receipt Date: 20070925
  Transmission Date: 20080115
  Serious: Yes (Hospitalization)
  Sender: FDA-Public Use
  Company Number: FRWYE369025SEP07

PATIENT
  Sex: Male

DRUGS (2)
  1. EFFEXOR XR [Suspect]
     Indication: DEPRESSION
     Route: 048
     Dates: start: 20070802, end: 20070803
  2. PROZAC [Interacting]
     Indication: DEPRESSION
     Route: 048
     Dates: end: 20070731

REACTIONS (10)
  - ANTEROGRADE AMNESIA [None]
  - BRADYPHRENIA [None]
  - CONFUSIONAL STATE [None]
  - DRUG INTERACTION [None]
  - GRAND MAL CONVULSION [None]
  - HALLUCINATION, VISUAL [None]
  - HEADACHE [None]
  - PERSONALITY CHANGE DUE TO A GENERAL MEDICAL CONDITION [None]
  - SEROTONIN SYNDROME [None]
  - TREMOR [None]
